FAERS Safety Report 20631152 (Version 2)
Quarter: 2022Q2

REPORT INFORMATION
  Report Type: Spontaneous
  Country: US (occurrence: US)
  Receive Date: 20220324
  Receipt Date: 20220413
  Transmission Date: 20220721
  Serious: Yes (Other)
  Sender: FDA-Public Use
  Company Number: US-TEVA-2022-US-2018984

PATIENT
  Age: 92 Year
  Sex: Female

DRUGS (1)
  1. BUSPIRONE [Suspect]
     Active Substance: BUSPIRONE HYDROCHLORIDE
     Indication: Adjustment disorder with mixed anxiety and depressed mood
     Dosage: 10 MILLIGRAM DAILY;
     Route: 065

REACTIONS (4)
  - Dystonia [Recovered/Resolved]
  - Muscle twitching [Recovered/Resolved]
  - Lip haemorrhage [Recovered/Resolved]
  - Tongue haemorrhage [Recovered/Resolved]
